FAERS Safety Report 5352959-6 (Version None)
Quarter: 2007Q2

REPORT INFORMATION
  Report Type: 
  Country: None (occurrence: None)
  Receive Date: 20070611
  Receipt Date: 20070530
  Transmission Date: 20071010
  Serious: Yes (Other)
  Sender: FDA-Public Use
  Company Number: FR-AMGEN-US204534

PATIENT
  Sex: Female
  Weight: 52 kg

DRUGS (9)
  1. ENBREL [Suspect]
     Indication: RHEUMATOID ARTHRITIS
     Route: 058
     Dates: start: 20030302, end: 20060701
  2. ENBREL [Suspect]
     Route: 058
     Dates: start: 20060701
  3. ENBREL [Suspect]
     Route: 058
     Dates: start: 20060101, end: 20061127
  4. CACIT [Concomitant]
     Indication: OSTEOPOROSIS
     Route: 048
     Dates: start: 20020101
  5. MULTIVITAMIN [Concomitant]
     Indication: MACULAR DEGENERATION
     Route: 048
     Dates: start: 20000101
  6. TRIMETAZIDINE HYDROCHLORIDE [Concomitant]
     Indication: MACULAR DEGENERATION
     Route: 048
     Dates: start: 20000101
  7. MEGAMAG [Concomitant]
     Indication: ANXIETY
     Route: 048
     Dates: start: 20040729
  8. ACTONEL [Concomitant]
     Indication: OSTEOPOROSIS
     Route: 048
     Dates: start: 20020101
  9. BROMAZEPAM [Concomitant]
     Indication: ANXIETY
     Route: 048
     Dates: start: 20030224

REACTIONS (2)
  - ANGIOLIPOMA [None]
  - PLEURAL EFFUSION [None]
